FAERS Safety Report 25964704 (Version 1)
Quarter: 2025Q4

REPORT INFORMATION
  Report Type: Report from Study
  Country: US (occurrence: US)
  Receive Date: 20251027
  Receipt Date: 20251027
  Transmission Date: 20260118
  Serious: Yes (Hospitalization, Other)
  Sender: ABBVIE
  Company Number: US-ABBVIE-6515899

PATIENT
  Age: 23 Year
  Sex: Male

DRUGS (2)
  1. RINVOQ [Suspect]
     Active Substance: UPADACITINIB
     Indication: Ankylosing spondylitis
     Dosage: FORM STRENGTH: 15 MG
     Route: 048
     Dates: start: 20250816, end: 20250924
  2. RASUVO [Concomitant]
     Active Substance: METHOTREXATE SODIUM
     Indication: Product used for unknown indication
     Dosage: AUTO INJ (0.5ML)

REACTIONS (7)
  - Photophobia [Recovered/Resolved]
  - Sepsis [Recovered/Resolved]
  - Neck pain [Recovered/Resolved]
  - Chills [Recovered/Resolved]
  - Meningitis [Recovered/Resolved]
  - Pain [Recovered/Resolved]
  - Ankylosing spondylitis [Not Recovered/Not Resolved]

NARRATIVE: CASE EVENT DATE: 20250101
